FAERS Safety Report 20638838 (Version 1)
Quarter: 2022Q1

REPORT INFORMATION
  Report Type: Report from Study
  Country: US (occurrence: US)
  Receive Date: 20220325
  Receipt Date: 20220325
  Transmission Date: 20220423
  Serious: Yes (Hospitalization)
  Sender: FDA-Public Use
  Company Number: US-GILEAD-2022-0575125

PATIENT
  Age: 80 Year
  Sex: Male

DRUGS (1)
  1. IDELALISIB [Suspect]
     Active Substance: IDELALISIB
     Indication: Lymphocytic leukaemia
     Dosage: 150 MG, BID
     Route: 048
     Dates: start: 20220222

REACTIONS (1)
  - Gastrointestinal disorder [Not Recovered/Not Resolved]
